FAERS Safety Report 15209659 (Version 1)
Quarter: 2018Q3

REPORT INFORMATION
  Report Type: Spontaneous
  Country: FR (occurrence: FR)
  Receive Date: 20180727
  Receipt Date: 20180727
  Transmission Date: 20181010
  Serious: Yes (Hospitalization)
  Sender: FDA-Public Use
  Company Number: FR-TEVA-2018-FR-930848

PATIENT
  Age: 67 Year
  Sex: Female
  Weight: 50 kg

DRUGS (4)
  1. CIPROFLOXACINE ARROW [Suspect]
     Active Substance: CIPROFLOXACIN
     Indication: SUPERINFECTION
     Dosage: 2250 MILLIGRAM DAILY;
     Route: 048
     Dates: start: 20180515, end: 20180605
  2. LEVOFLOXACINE [Suspect]
     Active Substance: LEVOFLOXACIN
     Indication: SUPERINFECTION
     Dosage: 100 MILLIGRAM DAILY;
     Route: 041
     Dates: start: 20180511, end: 20180515
  3. PIPERACILLIN AND TAZOBACTAM [Suspect]
     Active Substance: PIPERACILLIN SODIUM\TAZOBACTAM SODIUM
     Indication: SUPERINFECTION
     Dosage: 12000 MILLIGRAM DAILY;
     Route: 041
     Dates: start: 20180515, end: 20180605
  4. LANSOPRAZOLE MYLAN [Suspect]
     Active Substance: LANSOPRAZOLE
     Indication: SUPERINFECTION
     Dosage: 15 MILLIGRAM DAILY;
     Route: 048
     Dates: start: 20180430, end: 20180612

REACTIONS (2)
  - Rash maculo-papular [Recovering/Resolving]
  - Drug reaction with eosinophilia and systemic symptoms [Recovering/Resolving]

NARRATIVE: CASE EVENT DATE: 20180605
